FAERS Safety Report 7629383-6 (Version None)
Quarter: 2011Q3

REPORT INFORMATION
  Report Type: 
  Country: None (occurrence: None)
  Receive Date: 20110714
  Receipt Date: 20110708
  Transmission Date: 20111222
  Serious: Yes (Hospitalization)
  Sender: FDA-Public Use
  Company Number: 2010SP058760

PATIENT
  Age: 34 Year
  Sex: Female
  Weight: 106.1417 kg

DRUGS (2)
  1. LEVOTHYROXINE SODIUM [Concomitant]
  2. NUVARING [Suspect]
     Indication: CONTRACEPTION
     Dates: start: 20060201, end: 20081101

REACTIONS (9)
  - DEEP VEIN THROMBOSIS [None]
  - PULMONARY EMBOLISM [None]
  - DYSMENORRHOEA [None]
  - DISSEMINATED INTRAVASCULAR COAGULATION [None]
  - HYPOTHYROIDISM [None]
  - PLANTAR FASCIITIS [None]
  - SINUS TACHYCARDIA [None]
  - ARTHRALGIA [None]
  - PAIN IN EXTREMITY [None]
